FAERS Safety Report 6641185-6 (Version None)
Quarter: 2010Q1

REPORT INFORMATION
  Report Type: 
  Country: None (occurrence: None)
  Receive Date: 20100318
  Receipt Date: 20100305
  Transmission Date: 20100710
  Serious: Yes (Other)
  Sender: FDA-Public Use
  Company Number: PHHY2010BE10939

PATIENT
  Sex: Male

DRUGS (8)
  1. AFINITOR [Suspect]
     Dosage: 10 MG DAILY
     Dates: start: 20091105, end: 20100203
  2. ZOMETA [Suspect]
     Indication: RENAL CANCER METASTATIC
     Dosage: 4 MG INFUSIONS EVERY 4 WEEKS FOLLOWED BY 2 MG INFUSIONS
  3. ZOMETA [Suspect]
     Dosage: 2 MG, UNK
  4. OMEPRAZOLE [Concomitant]
     Dosage: 20 MG DAILY
  5. ADALAT [Concomitant]
     Dosage: ONCE DAILY
  6. MOTILIUM [Concomitant]
     Dosage: 3 X 10 MG DAILY
  7. DAFALGAN [Concomitant]
     Dosage: ON REQUEST
  8. PRIMPERAN INJ [Concomitant]
     Dosage: ON REQUEST

REACTIONS (9)
  - ANAEMIA [None]
  - CHOLELITHIASIS [None]
  - GALLBLADDER POLYP [None]
  - JOINT STIFFNESS [None]
  - MALIGNANT NEOPLASM PROGRESSION [None]
  - METASTATIC NEOPLASM [None]
  - NEPHROLITHIASIS [None]
  - RENAL FAILURE [None]
  - RENAL IMPAIRMENT [None]
